FAERS Safety Report 25360146 (Version 1)
Quarter: 2025Q2

REPORT INFORMATION
  Report Type: Report from Study
  Country: US (occurrence: US)
  Receive Date: 20250527
  Receipt Date: 20250527
  Transmission Date: 20250717
  Serious: Yes (Hospitalization)
  Sender: ROCHE
  Company Number: US-ROCHE-10000199297

PATIENT
  Age: 69 Year
  Sex: Female

DRUGS (3)
  1. TECENTRIQ [Suspect]
     Active Substance: ATEZOLIZUMAB
     Indication: Lung neoplasm malignant
     Dosage: 840 MG SINGLE USE VIAL
     Route: 042
     Dates: start: 202411, end: 202411
  2. TECENTRIQ [Suspect]
     Active Substance: ATEZOLIZUMAB
     Route: 042
     Dates: start: 20241009
  3. LEVOTHYROXINE [Concomitant]
     Active Substance: LEVOTHYROXINE

REACTIONS (1)
  - Thyroid disorder [Not Recovered/Not Resolved]

NARRATIVE: CASE EVENT DATE: 20241101
